FAERS Safety Report 21867503 (Version 1)
Quarter: 2023Q1

REPORT INFORMATION
  Report Type: Spontaneous
  Country: DZ (occurrence: DZ)
  Receive Date: 20230116
  Receipt Date: 20230116
  Transmission Date: 20230417
  Serious: Yes (Other)
  Sender: FDA-Public Use
  Company Number: DZ-MEDEXUS PHARMA, INC.-2023MED00004

PATIENT
  Age: 25 Year
  Sex: Female

DRUGS (1)
  1. METHOTREXATE [Suspect]
     Active Substance: METHOTREXATE
     Dosage: 906 MG/M^2 (1.315 G)

REACTIONS (5)
  - Aplasia [Unknown]
  - Prerenal failure [Unknown]
  - Mouth ulceration [Unknown]
  - Liver injury [Unknown]
  - Toxicity to various agents [Recovered/Resolved]
